FAERS Safety Report 8380042-4 (Version None)
Quarter: 2012Q2

REPORT INFORMATION
  Report Type: 
  Country: None (occurrence: None)
  Receive Date: 20120523
  Receipt Date: 20120510
  Transmission Date: 20120825
  Serious: Yes (Hospitalization)
  Sender: FDA-Public Use
  Company Number: US-GLAXOSMITHKLINE-A0884633A

PATIENT
  Age: 57 Year
  Sex: Female

DRUGS (6)
  1. AVANDAMET [Suspect]
     Indication: DIABETES MELLITUS
     Route: 048
     Dates: start: 20070101, end: 20070101
  2. AVANDIA [Suspect]
     Indication: DIABETES MELLITUS
     Dosage: 8MG PER DAY
     Route: 048
     Dates: start: 20060101, end: 20090101
  3. DIABETA [Concomitant]
  4. GLUCOPHAGE [Concomitant]
  5. ZOCOR [Concomitant]
  6. VASOTEC [Concomitant]

REACTIONS (2)
  - DEPRESSION [None]
  - CEREBROVASCULAR ACCIDENT [None]
